FAERS Safety Report 6193625-7 (Version None)
Quarter: 2009Q2

REPORT INFORMATION
  Report Type: 
  Country: None (occurrence: None)
  Receive Date: 20090514
  Receipt Date: 20090424
  Transmission Date: 20091009
  Serious: Yes (Hospitalization)
  Sender: FDA-Public Use
  Company Number: JPI-P-007059

PATIENT
  Age: 22 Year
  Sex: Female

DRUGS (6)
  1. XYREM             (500 MILLIGRAM/MILLILITERS, SOLUTION) (SODIUM OXYBAT [Suspect]
     Indication: INSOMNIA
     Dosage: 6 GM (3 GM, 2 IN 1 D), ORAL; 7.5 GM (3.75 GM, 2 IN 1 D),ORAL; ORAL
     Route: 048
     Dates: start: 20090323, end: 20090423
  2. XYREM             (500 MILLIGRAM/MILLILITERS, SOLUTION) (SODIUM OXYBAT [Suspect]
     Indication: INSOMNIA
     Dosage: 6 GM (3 GM, 2 IN 1 D), ORAL; 7.5 GM (3.75 GM, 2 IN 1 D),ORAL; ORAL
     Route: 048
     Dates: start: 20090424, end: 20090424
  3. XYREM             (500 MILLIGRAM/MILLILITERS, SOLUTION) (SODIUM OXYBAT [Suspect]
     Indication: INSOMNIA
     Dosage: 6 GM (3 GM, 2 IN 1 D), ORAL; 7.5 GM (3.75 GM, 2 IN 1 D),ORAL; ORAL
     Route: 048
     Dates: start: 20090225
  4. PAROXETINE HCL [Suspect]
     Indication: DEPRESSION
     Dates: end: 20090424
  5. BUSPIRONE HCL [Suspect]
     Indication: DEPRESSION
     Dates: end: 20090424
  6. LAMOTRIGINE [Suspect]
     Indication: DEPRESSION
     Dates: end: 20090424

REACTIONS (10)
  - BRADYCARDIA [None]
  - CONFUSIONAL STATE [None]
  - HALLUCINATION [None]
  - MEMORY IMPAIRMENT [None]
  - MULTIPLE DRUG OVERDOSE [None]
  - SCREAMING [None]
  - SUICIDE ATTEMPT [None]
  - TEARFULNESS [None]
  - TREMOR [None]
  - UNRESPONSIVE TO STIMULI [None]
